FAERS Safety Report 15996567 (Version 2)
Quarter: 2019Q1

REPORT INFORMATION
  Report Type: Spontaneous
  Country: BR (occurrence: BR)
  Receive Date: 20190222
  Receipt Date: 20190306
  Transmission Date: 20190418
  Serious: Yes (Other)
  Sender: FDA-Public Use
  Company Number: BR-PFIZER INC-2019072974

PATIENT
  Age: 59 Year
  Sex: Female

DRUGS (1)
  1. LORAX//LORAZEPAM [Suspect]
     Active Substance: LORAZEPAM
     Indication: SLEEP DISORDER
     Dosage: 1 TABLET OF 1MG EVERY NIGHT
     Dates: start: 1989

REACTIONS (5)
  - Deafness [Not Recovered/Not Resolved]
  - Product use issue [Unknown]
  - Colitis ulcerative [Unknown]
  - Drug dependence [Not Recovered/Not Resolved]
  - Product use in unapproved indication [Unknown]

NARRATIVE: CASE EVENT DATE: 1989
